FAERS Safety Report 25078912 (Version 2)
Quarter: 2025Q3

REPORT INFORMATION
  Report Type: Report from Study
  Country: US (occurrence: US)
  Receive Date: 20250314
  Receipt Date: 20250826
  Transmission Date: 20251021
  Serious: Yes (Other)
  Sender: GILEAD
  Company Number: US-GILEAD-2025-0707207

PATIENT
  Age: 73 Year
  Sex: Female

DRUGS (6)
  1. BREXUCABTAGENE AUTOLEUCEL [Suspect]
     Active Substance: BREXUCABTAGENE AUTOLEUCEL
     Indication: Non-Hodgkin^s lymphoma
     Route: 042
  2. RITUXIMAB [Concomitant]
     Active Substance: RITUXIMAB
  3. BENDAMUSTINE [Concomitant]
     Active Substance: BENDAMUSTINE
  4. CYTARABINE [Concomitant]
     Active Substance: CYTARABINE
  5. CYCLOPHOSPHAMIDE [Concomitant]
     Active Substance: CYCLOPHOSPHAMIDE
     Indication: Bone marrow conditioning regimen
  6. FLUDARABINE [Concomitant]
     Active Substance: FLUDARABINE PHOSPHATE
     Indication: Bone marrow conditioning regimen

REACTIONS (1)
  - Basal cell carcinoma [Unknown]
